FAERS Safety Report 17819063 (Version 5)
Quarter: 2020Q3

REPORT INFORMATION
  Report Type: Report from Study
  Country: None (occurrence: US)
  Receive Date: 20200523
  Receipt Date: 20200928
  Transmission Date: 20201102
  Serious: Yes (Other)
  Sender: FDA-Public Use
  Company Number: US-ABBVIE-20K-163-3413589-00

PATIENT
  Sex: Female

DRUGS (3)
  1. HUMIRA [Suspect]
     Active Substance: ADALIMUMAB
     Indication: RHEUMATOID ARTHRITIS
     Dosage: CITRATE FREE
     Route: 058
     Dates: start: 200005
  2. HUMIRA [Suspect]
     Active Substance: ADALIMUMAB
     Route: 058
  3. HUMIRA [Suspect]
     Active Substance: ADALIMUMAB
     Route: 058

REACTIONS (9)
  - Breast mass [Unknown]
  - Keratomileusis [Unknown]
  - Venous operation [Unknown]
  - Knee arthroplasty [Unknown]
  - Gait inability [Unknown]
  - Dry eye [Unknown]
  - Gastric bypass [Unknown]
  - Weight increased [Unknown]
  - Eye pruritus [Unknown]

NARRATIVE: CASE EVENT DATE: 2010
